FAERS Safety Report 4685609-2 (Version None)
Quarter: 2005Q2

REPORT INFORMATION
  Report Type: 
  Country: None (occurrence: None)
  Receive Date: 20050608
  Receipt Date: 20050524
  Transmission Date: 20051028
  Serious: Yes (Hospitalization)
  Sender: FDA-Public Use
  Company Number: 200413398JP

PATIENT
  Age: 49 Year
  Sex: Female
  Weight: 58 kg

DRUGS (14)
  1. ARAVA [Suspect]
     Indication: RHEUMATOID ARTHRITIS
     Dosage: 100 MG/DAY PO
     Route: 048
     Dates: start: 20031113, end: 20031115
  2. ARAVA [Suspect]
     Indication: RHEUMATOID ARTHRITIS
     Dosage: 20 MG/DAY PO
     Route: 048
     Dates: start: 20031116, end: 20040129
  3. ARAVA [Suspect]
     Indication: RHEUMATOID ARTHRITIS
     Dosage: 10 MG/DAY PO
     Route: 048
     Dates: start: 20040130, end: 20040226
  4. ARAVA [Suspect]
     Indication: RHEUMATOID ARTHRITIS
     Dosage: 20 MG/DAY PO
     Route: 048
     Dates: start: 20040227, end: 20040419
  5. VOLTAREN [Concomitant]
  6. MUCOSTA [Concomitant]
  7. VOLTAREN [Concomitant]
  8. PREDNISOLONE [Concomitant]
  9. PREDONINE [Concomitant]
  10. BREDININ [Concomitant]
  11. AZULFIDINE EN-TABS [Concomitant]
  12. MOVER [Concomitant]
  13. SELTOUCH [Concomitant]
  14. METHOTREXATE [Concomitant]

REACTIONS (9)
  - ALANINE AMINOTRANSFERASE INCREASED [None]
  - ASPARTATE AMINOTRANSFERASE INCREASED [None]
  - BLOOD ALKALINE PHOSPHATASE INCREASED [None]
  - BLOOD LACTATE DEHYDROGENASE INCREASED [None]
  - CHILLS [None]
  - DIARRHOEA [None]
  - GAMMA-GLUTAMYLTRANSFERASE INCREASED [None]
  - HEPATIC FUNCTION ABNORMAL [None]
  - PYREXIA [None]
